FAERS Safety Report 8569619 (Version 2)
Quarter: 2012Q4

REPORT INFORMATION
  Report Type: 
  Country: IT (occurrence: IT)
  Receive Date: 20120518
  Receipt Date: 20121218
  Transmission Date: 20130627
  Serious: Yes (Death, Hospitalization, Other)
  Sender: FDA-Public Use
  Company Number: IT-EISAI INC-E7867-00264-SPO-IT

PATIENT
  Age: 12 Year
  Sex: Male

DRUGS (4)
  1. GLIADEL [Suspect]
     Indication: ANAPLASTIC EPENDYMOMA
     Dosage: 8 Wafers
     Dates: start: 200607
  2. ETOPOSIDE [Concomitant]
     Indication: ANAPLASTIC EPENDYMOMA
     Route: 048
  3. VINCRISTINE [Concomitant]
  4. CYCLOPHOSPHAMIDE [Concomitant]

REACTIONS (5)
  - Disease progression [Fatal]
  - Neurological decompensation [Unknown]
  - Headache [Unknown]
  - Vomiting [Unknown]
  - Off label use [Unknown]
